FAERS Safety Report 13242713 (Version 2)
Quarter: 2017Q1

REPORT INFORMATION
  Report Type: Spontaneous
  Country: DE (occurrence: DE)
  Receive Date: 20170216
  Receipt Date: 20170330
  Transmission Date: 20170428
  Serious: Yes (Life-Threatening, Other)
  Sender: FDA-Public Use
  Company Number: DE-PFIZER INC-2017069244

PATIENT
  Age: 34 Year
  Sex: Male
  Weight: 63 kg

DRUGS (1)
  1. RAPAMUNE [Suspect]
     Active Substance: SIROLIMUS
     Indication: ARTERIOVENOUS MALFORMATION
     Dosage: 3 MG, 1X/DAY
     Route: 048
     Dates: start: 20170201, end: 20170209

REACTIONS (4)
  - Depression suicidal [Unknown]
  - Headache [Unknown]
  - Product use issue [Unknown]
  - Vena cava thrombosis [Unknown]

NARRATIVE: CASE EVENT DATE: 20170202
